FAERS Safety Report 10784391 (Version 1)
Quarter: 2015Q1

REPORT INFORMATION
  Report Type: Spontaneous
  Country: US (occurrence: None)
  Receive Date: 20150209
  Receipt Date: 20150209
  Transmission Date: 20150721
  Serious: No
  Sender: FDA-Public Use
  Company Number: None

PATIENT

DRUGS (2)
  1. PONTOCAINE (TETRACAINE) 0.5 % [Suspect]
     Active Substance: TETRACAINE HYDROCHLORIDE
     Dosage: DOSAGE FORM: SOLUTION, ADMIN ROUTE: OPHTHALMIC, STRENGTH: 0.5 %
     Route: 047
  2. TETRAVISC [Suspect]
     Active Substance: TETRACAINE HYDROCHLORIDE
     Dosage: DOSAGE FORM: SOLUTION, ADM ROUTE: OPHTHALMIC, STRENGTH: 0.5 %
     Route: 047

REACTIONS (2)
  - Drug dispensing error [None]
  - Incorrect drug dosage form administered [None]
